FAERS Safety Report 4480998-6 (Version None)
Quarter: 2004Q4

REPORT INFORMATION
  Report Type: 
  Country: None (occurrence: None)
  Receive Date: 20041021
  Receipt Date: 20041006
  Transmission Date: 20050328
  Serious: Yes (Life-Threatening)
  Sender: FDA-Public Use
  Company Number: DE-BRISTOL-MYERS SQUIBB COMPANY-12724308

PATIENT
  Age: 52 Year
  Sex: Female
  Weight: 71 kg

DRUGS (6)
  1. CARBOPLATIN [Suspect]
     Indication: OVARIAN CANCER
     Dosage: DELAYED/OMITTED
     Dates: start: 20030714, end: 20030714
  2. PACLITAXEL [Suspect]
     Indication: OVARIAN CANCER
     Dosage: DELAYED/OMITTED
     Dates: start: 20030714, end: 20030714
  3. DEXAMETHASONE [Concomitant]
     Indication: PREMEDICATION
     Dates: start: 20030915, end: 20030915
  4. GRANISETRON [Concomitant]
     Indication: PREMEDICATION
     Dates: start: 20030915, end: 20030915
  5. RANITIDINE [Concomitant]
     Indication: PREMEDICATION
     Dates: start: 20030915, end: 20030915
  6. CLEMASTINE [Concomitant]
     Indication: PREMEDICATION
     Dates: start: 20030915, end: 20030915

REACTIONS (3)
  - ABDOMINAL WALL ABSCESS [None]
  - ANASTOMOTIC LEAK [None]
  - SUBILEUS [None]
